FAERS Safety Report 8608371-7 (Version None)
Quarter: 2012Q3

REPORT INFORMATION
  Report Type: 
  Country: None (occurrence: None)
  Receive Date: 20120821
  Receipt Date: 20120820
  Transmission Date: 20120928
  Serious: Yes (Other)
  Sender: FDA-Public Use
  Company Number: SE-ROCHE-775611

PATIENT
  Sex: Female

DRUGS (1)
  1. PEGASYS [Suspect]
     Indication: HEPATITIS C
     Route: 065

REACTIONS (10)
  - MIGRAINE [None]
  - PERIODONTITIS [None]
  - ALOPECIA [None]
  - LOOSE TOOTH [None]
  - DEPRESSION [None]
  - NAUSEA [None]
  - ECZEMA [None]
  - GINGIVAL SWELLING [None]
  - WEIGHT DECREASED [None]
  - COLD SWEAT [None]
